FAERS Safety Report 6330273-X (Version None)
Quarter: 2009Q3

REPORT INFORMATION
  Report Type: 
  Country: None (occurrence: None)
  Receive Date: 20090827
  Receipt Date: 20090602
  Transmission Date: 20100115
  Serious: No
  Sender: FDA-Public Use
  Company Number: US-KINGPHARMUSA00001-K200900673

PATIENT
  Sex: Female
  Weight: 67.12 kg

DRUGS (1)
  1. FLECTOR [Suspect]
     Indication: MUSCLE RUPTURE
     Dosage: UNK
     Route: 061
     Dates: start: 20090522, end: 20090601

REACTIONS (3)
  - DYSPNOEA [None]
  - HEART RATE INCREASED [None]
  - PALPITATIONS [None]
